FAERS Safety Report 13504703 (Version 2)
Quarter: 2017Q3

REPORT INFORMATION
  Report Type: Spontaneous
  Country: US (occurrence: US)
  Receive Date: 20170502
  Receipt Date: 20170724
  Transmission Date: 20171127
  Serious: No
  Sender: FDA-Public Use
  Company Number: US-IMPAX LABORATORIES, INC-2017-IPXL-00069

PATIENT
  Sex: Male

DRUGS (3)
  1. CARBIDOPA-LEVODOPA ER [Suspect]
     Active Substance: CARBIDOPA\LEVODOPA
     Indication: PARKINSON^S DISEASE
     Dosage: 25/100 MG, UNK
     Route: 048
  2. RYTARY [Suspect]
     Active Substance: CARBIDOPA\LEVODOPA
     Dosage: 48.75/195MG, 2 CAPSULES 4 TIMES DAILY
     Route: 065
     Dates: start: 201701
  3. RYTARY [Suspect]
     Active Substance: CARBIDOPA\LEVODOPA
     Indication: PRODUCT USED FOR UNKNOWN INDICATION
     Dosage: 36.25/145MG; 2 CAPSULES FOUR TIMES DAILY (8 AM, 12 PM, 4 PM AND 8 PM)
     Route: 065
     Dates: start: 20161213

REACTIONS (5)
  - Freezing phenomenon [Recovered/Resolved]
  - Limb discomfort [Recovered/Resolved]
  - Tremor [Not Recovered/Not Resolved]
  - Drug effect variable [Unknown]
  - Dyskinesia [Not Recovered/Not Resolved]
